FAERS Safety Report 20481566 (Version 1)
Quarter: 2022Q1

REPORT INFORMATION
  Report Type: Spontaneous
  Country: US (occurrence: None)
  Receive Date: 20220216
  Receipt Date: 20220216
  Transmission Date: 20220423
  Serious: No
  Sender: FDA-Public Use
  Company Number: None

PATIENT
  Sex: Female

DRUGS (1)
  1. MYCOPHENOLATE MOFETIL [Suspect]
     Active Substance: MYCOPHENOLATE MOFETIL
     Indication: Lipomatosis
     Dosage: FREQUENCY : TWICE A DAY;?
     Route: 048
     Dates: start: 20210919

REACTIONS (3)
  - Haemorrhage [None]
  - Thrombocytopenia [None]
  - Von Willebrand^s disease [None]
